FAERS Safety Report 8365160-9 (Version None)
Quarter: 2012Q1

REPORT INFORMATION
  Report Type: 
  Country: None (occurrence: None)
  Receive Date: 20120323
  Receipt Date: 20111116
  Transmission Date: 20120608
  Serious: Yes (Hospitalization)
  Sender: FDA-Public Use
  Company Number: 163-21880-11112548

PATIENT
  Age: 58 Year
  Sex: Male

DRUGS (4)
  1. DEXAMETHASONE [Concomitant]
  2. LACTULOSE [Concomitant]
  3. REVLIMID [Suspect]
     Indication: MULTIPLE MYELOMA
     Dosage: 25 MG,  DAILY, PO
     Route: 047
     Dates: start: 20100801, end: 20110501
  4. LORAZEPAM [Concomitant]

REACTIONS (3)
  - MOUTH HAEMORRHAGE [None]
  - PLATELET COUNT DECREASED [None]
  - EPISTAXIS [None]
